FAERS Safety Report 15310095 (Version 2)
Quarter: 2018Q4

REPORT INFORMATION
  Report Type: Spontaneous
  Country: US (occurrence: US)
  Receive Date: 20180823
  Receipt Date: 20181018
  Transmission Date: 20190204
  Serious: No
  Sender: FDA-Public Use
  Company Number: US-PFIZER INC-2018334579

PATIENT
  Age: 56 Year
  Sex: Female

DRUGS (2)
  1. FLECTOR [Suspect]
     Active Substance: DICLOFENAC EPOLAMINE
     Indication: POST PROCEDURAL OEDEMA
  2. FLECTOR [Suspect]
     Active Substance: DICLOFENAC EPOLAMINE
     Indication: PROCEDURAL PAIN
     Dosage: 2 DF, DAILY
     Dates: start: 201503

REACTIONS (1)
  - Drug effective for unapproved indication [Unknown]
